FAERS Safety Report 8336973-4 (Version None)
Quarter: 2012Q2

REPORT INFORMATION
  Report Type: 
  Country: None (occurrence: None)
  Receive Date: 20120501
  Receipt Date: 20120404
  Transmission Date: 20120825
  Serious: Yes (Hospitalization)
  Sender: FDA-Public Use
  Company Number: 1239439

PATIENT
  Age: 83 Year
  Sex: Female
  Weight: 40 kg

DRUGS (13)
  1. FUROSEMIDE [Concomitant]
  2. URSODIOL [Concomitant]
  3. NITRAZEPAM [Suspect]
     Indication: ECHOCARDIOGRAM
     Dosage: 2.75 MG MILLIGRAM(S) INTRAVENOUS (NOT OTHERWISE SPECIFIED)
     Route: 042
     Dates: start: 20120307
  4. NITRAZEPAM [Suspect]
     Indication: SEDATION
     Dosage: 2.75 MG MILLIGRAM(S) INTRAVENOUS (NOT OTHERWISE SPECIFIED)
     Route: 042
     Dates: start: 20120307
  5. (PHOSPHATIDYL CHOLINE) [Concomitant]
  6. EPLERENONE [Concomitant]
  7. (BENZBROMARONE) [Concomitant]
  8. (ZOPICLONE) [Concomitant]
  9. (WARFARIN POTASSIUM) [Concomitant]
  10. (CARPERITIDE) [Concomitant]
  11. SPIRONOLACTONE [Concomitant]
  12. DEXMEDETOMIDINE HYDROCHLORIDE [Suspect]
     Indication: ECHOCARDIOGRAM
     Dosage: TOTAL OF 32 MCG (INITIAL LOADING DOSE OVER  8 MIN), INTRAVENOUS DR
     Route: 041
     Dates: start: 20120307, end: 20120307
  13. DEXMEDETOMIDINE HYDROCHLORIDE [Suspect]
     Indication: SEDATION
     Dosage: TOTAL OF 32 MCG (INITIAL LOADING DOSE OVER  8 MIN), INTRAVENOUS DR
     Route: 041
     Dates: start: 20120307, end: 20120307

REACTIONS (6)
  - HYPOTENSION [None]
  - PULSE ABSENT [None]
  - DEPRESSED LEVEL OF CONSCIOUSNESS [None]
  - BRADYPNOEA [None]
  - HYPOXIA [None]
  - BRADYCARDIA [None]
